FAERS Safety Report 11090339 (Version 1)
Quarter: 2015Q2

REPORT INFORMATION
  Report Type: Spontaneous
  Country: US (occurrence: None)
  Receive Date: 20150504
  Receipt Date: 20150504
  Transmission Date: 20150821
  Serious: Yes (Hospitalization)
  Sender: FDA-Public Use
  Company Number: None

PATIENT
  Age: 58 Year
  Sex: Male
  Weight: 92.7 kg

DRUGS (11)
  1. LACTULOSE. [Concomitant]
     Active Substance: LACTULOSE
  2. OSELTAMIVIR [Concomitant]
     Active Substance: OSELTAMIVIR
  3. NITROFURANTIN [Concomitant]
     Active Substance: NITROFURANTOIN
  4. LEVOTHYROXINE [Concomitant]
     Active Substance: LEVOTHYROXINE
  5. ACETAMINOPHEN. [Concomitant]
     Active Substance: ACETAMINOPHEN
  6. CALCIUM CITRATE [Concomitant]
     Active Substance: CALCIUM CITRATE
  7. PHENOBARBITAL. [Concomitant]
     Active Substance: PHENOBARBITAL
  8. TAMSULOSIN [Concomitant]
     Active Substance: TAMSULOSIN
  9. VITAMIN C [Concomitant]
     Active Substance: ASCORBIC ACID
  10. WARFARIN [Suspect]
     Active Substance: WARFARIN
     Indication: ANTIPHOSPHOLIPID SYNDROME
     Route: 048
     Dates: start: 20140801, end: 20150413
  11. CARBAZEPINE [Concomitant]
     Active Substance: CARBAMAZEPINE

REACTIONS (5)
  - Tachycardia [None]
  - Prothrombin time prolonged [None]
  - Pneumonia aspiration [None]
  - International normalised ratio increased [None]
  - Lethargy [None]

NARRATIVE: CASE EVENT DATE: 20150413
